FAERS Safety Report 23243434 (Version 1)
Quarter: 2023Q4

REPORT INFORMATION
  Report Type: Spontaneous
  Country: US (occurrence: US)
  Receive Date: 20231130
  Receipt Date: 20231130
  Transmission Date: 20240110
  Serious: Yes (Hospitalization, Other)
  Sender: FDA-Public Use
  Company Number: US-APOTEX-2023AP017140

PATIENT
  Age: 79 Year
  Sex: Male

DRUGS (9)
  1. MOXIFLOXACIN [Suspect]
     Active Substance: MOXIFLOXACIN
     Indication: Conjunctivitis
     Dosage: UNK UNK, QID (4 TIMES DAILY IN HIS RIGHT EYE)
     Route: 047
     Dates: start: 2022, end: 2022
  2. AMOXICILLIN\CLAVULANATE POTASSIUM [Suspect]
     Active Substance: AMOXICILLIN\CLAVULANATE POTASSIUM
     Indication: Product used for unknown indication
     Dosage: UNK
     Route: 048
     Dates: start: 2022, end: 2022
  3. BACITRACIN\POLYMYXIN B SULFATE [Suspect]
     Active Substance: BACITRACIN\POLYMYXIN B SULFATE
     Indication: Conjunctivitis
     Dosage: UNK UNK, QID (4 TIMES DAILY IN HIS RIGHT EYE)
     Route: 047
     Dates: start: 2022, end: 2022
  4. VANCOMYCIN [Suspect]
     Active Substance: VANCOMYCIN
     Indication: Prophylaxis
     Dosage: UNK UNK, Q.H.
     Route: 061
     Dates: start: 2022, end: 2022
  5. VANCOMYCIN [Suspect]
     Active Substance: VANCOMYCIN
     Dosage: UNK UNK, Q.2H.
     Route: 061
     Dates: start: 2022, end: 2022
  6. CEFTAZIDIME [Suspect]
     Active Substance: CEFTAZIDIME
     Indication: Prophylaxis
     Dosage: UNK, Q.H.
     Route: 061
     Dates: start: 2022, end: 2022
  7. MEROPENEM [Suspect]
     Active Substance: MEROPENEM
     Indication: Urinary tract infection
     Dosage: UNK
     Route: 042
     Dates: start: 2022, end: 2022
  8. TOBRAMYCIN AND DEXAMETHASONE [Suspect]
     Active Substance: DEXAMETHASONE\TOBRAMYCIN
     Indication: Product used for unknown indication
     Dosage: UNK, Q.H.S.
     Route: 065
     Dates: start: 2022, end: 2022
  9. HYPOCHLOROUS ACID [Concomitant]
     Active Substance: HYPOCHLOROUS ACID
     Indication: Conjunctivitis
     Dosage: UNK UNK, QID (4 TIMES DAILY IN HIS RIGHT EYE)
     Route: 047
     Dates: start: 2022, end: 2022

REACTIONS (2)
  - Pseudomonas infection [Recovering/Resolving]
  - Multiple-drug resistance [Unknown]

NARRATIVE: CASE EVENT DATE: 20220101
